FAERS Safety Report 5571974-0 (Version None)
Quarter: 2007Q4

REPORT INFORMATION
  Report Type: 
  Country: None (occurrence: None)
  Receive Date: 20071221
  Receipt Date: 20071129
  Transmission Date: 20080405
  Serious: No
  Sender: FDA-Public Use
  Company Number: US-BOEHRINGER INGELHEIM PHARMACEUTICALS, INC.-2007-BP-25312BP

PATIENT
  Sex: Female

DRUGS (3)
  1. CATAPRES [Suspect]
  2. BENICAR [Concomitant]
  3. DILTIAZEM [Concomitant]

REACTIONS (1)
  - DRUG INEFFECTIVE [None]
